FAERS Safety Report 6647925-4 (Version None)
Quarter: 2010Q1

REPORT INFORMATION
  Report Type: 
  Country: None (occurrence: None)
  Receive Date: 20100324
  Receipt Date: 20100315
  Transmission Date: 20100710
  Serious: Yes (Other)
  Sender: FDA-Public Use
  Company Number: CA-JNJFOC-20100304566

PATIENT
  Sex: Female
  Weight: 72 kg

DRUGS (8)
  1. REMICADE [Suspect]
     Indication: CROHN'S DISEASE
     Route: 042
  2. REMICADE [Suspect]
     Route: 042
  3. REMICADE [Suspect]
     Indication: ANKYLOSING SPONDYLITIS
     Route: 042
  4. REMICADE [Suspect]
     Route: 042
  5. IMURAN [Concomitant]
     Route: 048
  6. EFFEXOR [Concomitant]
     Route: 048
  7. SALBUTAMOL [Concomitant]
     Indication: SEASONAL ALLERGY
     Dosage: SEASONAL
     Route: 055
  8. FLOVENT [Concomitant]
     Indication: SEASONAL ALLERGY
     Dosage: SEASONAL
     Route: 055

REACTIONS (1)
  - HYPOAESTHESIA [None]
